FAERS Safety Report 23130117 (Version 1)
Quarter: 2023Q4

REPORT INFORMATION
  Report Type: Spontaneous
  Country: CN (occurrence: CN)
  Receive Date: 20231031
  Receipt Date: 20231031
  Transmission Date: 20240110
  Serious: Yes (Life-Threatening, Other)
  Sender: FDA-Public Use
  Company Number: CN-PFIZER INC-PV202300176735

PATIENT
  Age: 55 Year
  Sex: Female
  Weight: 62 kg

DRUGS (2)
  1. CYTARABINE [Suspect]
     Active Substance: CYTARABINE
     Indication: Chemotherapy
     Dosage: 1 G, 2X/DAY
     Route: 041
     Dates: start: 20230914, end: 20230917
  2. METHOTREXATE SODIUM [Suspect]
     Active Substance: METHOTREXATE SODIUM
     Indication: Chemotherapy
     Dosage: 800 MG, 2X/DAY
     Dates: start: 20230913, end: 20230913

REACTIONS (1)
  - Myelosuppression [Recovering/Resolving]

NARRATIVE: CASE EVENT DATE: 20230917
